FAERS Safety Report 24317016 (Version 4)
Quarter: 2024Q4

REPORT INFORMATION
  Report Type: Spontaneous
  Country: US (occurrence: US)
  Receive Date: 20240913
  Receipt Date: 20241218
  Transmission Date: 20250114
  Serious: No
  Sender: SANOFI AVENTIS
  Company Number: US-SA-2024SA263071

PATIENT
  Age: 55 Year
  Sex: Female

DRUGS (1)
  1. DUPIXENT [Suspect]
     Active Substance: DUPILUMAB
     Indication: Eosinophilic oesophagitis
     Dosage: 300 MG, QW
     Route: 058
     Dates: start: 20240706, end: 20241012

REACTIONS (8)
  - Oesophageal motility disorder [Recovering/Resolving]
  - Condition aggravated [Recovering/Resolving]
  - Rash pruritic [Recovered/Resolved]
  - Erythema of eyelid [Recovered/Resolved]
  - Giant papillary conjunctivitis [Unknown]
  - Dry eye [Not Recovered/Not Resolved]
  - Arthralgia [Recovered/Resolved]
  - Eye inflammation [Recovering/Resolving]

NARRATIVE: CASE EVENT DATE: 20240101
